FAERS Safety Report 8407277-6 (Version None)
Quarter: 2012Q2

REPORT INFORMATION
  Report Type: 
  Country: None (occurrence: None)
  Receive Date: 20120529
  Receipt Date: 20120514
  Transmission Date: 20120825
  Serious: Yes (Hospitalization)
  Sender: FDA-Public Use
  Company Number: 2012-2231

PATIENT
  Age: 60 Year
  Sex: Female

DRUGS (10)
  1. SOMATULINE DEPOT [Suspect]
  2. SOMATULINE DEPOT [Suspect]
     Indication: PANCREATIC NEUROENDOCRINE TUMOUR
     Dosage: 60 MG (60 MG, 1 IN 28 D), SUBCUTANEOUS
     Route: 058
  3. NOVOLOG [Concomitant]
  4. PANCREASE (PANCREATIN) [Concomitant]
  5. SUTENT (SU 11248) [Concomitant]
  6. SOMATULINE DEPOT [Suspect]
  7. LISINOPRIL [Concomitant]
  8. SOMATULINE DEPOT [Suspect]
  9. OMEPRAZOLE [Concomitant]
  10. NITROFURANTOIN [Concomitant]

REACTIONS (1)
  - SPINAL FRACTURE [None]
